FAERS Safety Report 7240645-7 (Version None)
Quarter: 2011Q1

REPORT INFORMATION
  Report Type: 
  Country: None (occurrence: None)
  Receive Date: 20110124
  Receipt Date: 20100430
  Transmission Date: 20110831
  Serious: No
  Sender: FDA-Public Use
  Company Number: US-KINGPHARMUSA00001-K201000535

PATIENT
  Age: 2 Year
  Sex: Female

DRUGS (1)
  1. EPIPEN [Suspect]
     Dosage: 0.3 MG, SINGLE

REACTIONS (3)
  - ACCIDENTAL EXPOSURE [None]
  - HEART RATE INCREASED [None]
  - RESTLESSNESS [None]
